FAERS Safety Report 8018014-1 (Version None)
Quarter: 2012Q1

REPORT INFORMATION
  Report Type: 
  Country: None (occurrence: None)
  Receive Date: 20120103
  Receipt Date: 20111222
  Transmission Date: 20120608
  Serious: Yes (Disabling)
  Sender: FDA-Public Use
  Company Number: FR-JNJFOC-20111209799

PATIENT
  Sex: Male

DRUGS (6)
  1. RISPERDAL CONSTA [Suspect]
     Indication: PRODUCT USED FOR UNKNOWN INDICATION
     Route: 030
  2. RISPERDAL CONSTA [Suspect]
     Dosage: 2 INJECTIONS PER MONTH SINCE THE 25-OCT-2011
     Route: 030
     Dates: start: 20111025
  3. VALPROIC ACID [Concomitant]
     Indication: PRODUCT USED FOR UNKNOWN INDICATION
     Route: 065
  4. EFFEXOR [Concomitant]
     Indication: PRODUCT USED FOR UNKNOWN INDICATION
     Dosage: 75 MG AT 2 DOSES IN THE MORNING
     Route: 065
  5. TRIMEPRAZINE TARTRATE [Concomitant]
     Indication: PRODUCT USED FOR UNKNOWN INDICATION
     Dosage: 30 DROPS AT BEDTIME
     Route: 065
  6. RISPERDAL CONSTA [Suspect]
     Dosage: 1 INJECTION PER MONTH SINCE 2 YEARS
     Route: 030

REACTIONS (2)
  - OEDEMA PERIPHERAL [None]
  - INAPPROPRIATE SCHEDULE OF DRUG ADMINISTRATION [None]
